FAERS Safety Report 10919078 (Version 2)
Quarter: 2015Q4

REPORT INFORMATION
  Report Type: Spontaneous
  Country: NO (occurrence: NO)
  Receive Date: 20150316
  Receipt Date: 20151009
  Transmission Date: 20160304
  Serious: Yes (Hospitalization)
  Sender: FDA-Public Use
  Company Number: NO-JAZZ-2015-NO-003825

PATIENT
  Age: 9 Year
  Sex: Female

DRUGS (5)
  1. XYREM [Suspect]
     Active Substance: SODIUM OXYBATE
     Indication: NARCOLEPSY
     Dosage: 2.5 MG, FIRST DOSE
     Route: 048
     Dates: start: 201308
  2. XYREM [Suspect]
     Active Substance: SODIUM OXYBATE
     Dosage: 3 MG, SECOND DOSE
     Route: 048
     Dates: start: 201308
  3. DEXAMPHETAMINE [Suspect]
     Active Substance: AMPHETAMINE
     Indication: NARCOLEPSY
     Dosage: 5 MG, BID
     Route: 048
     Dates: start: 20141101, end: 20150213
  4. CONCERTA [Suspect]
     Active Substance: METHYLPHENIDATE HYDROCHLORIDE
     Indication: NARCOLEPSY
     Dosage: 54 MG, QD
     Route: 048
     Dates: start: 2012, end: 20141101
  5. FLUOXETINE [Suspect]
     Active Substance: FLUOXETINE HYDROCHLORIDE
     Indication: NARCOLEPSY
     Dosage: 20 MG, QD
     Route: 048
     Dates: start: 201308

REACTIONS (1)
  - Cyanosis [Not Recovered/Not Resolved]

NARRATIVE: CASE EVENT DATE: 201406
